FAERS Safety Report 6555420-6 (Version None)
Quarter: 2010Q1

REPORT INFORMATION
  Report Type: 
  Country: None (occurrence: None)
  Receive Date: 20100128
  Receipt Date: 20091104
  Transmission Date: 20100710
  Serious: Yes (Other)
  Sender: FDA-Public Use
  Company Number: A0815067A

PATIENT
  Age: 51 Year
  Sex: Female

DRUGS (4)
  1. BUPROPION HYDROCHLORIDE [Suspect]
     Indication: DEPRESSION
     Route: 048
     Dates: start: 20090901, end: 20090901
  2. UNKNOWN BLADDER MEDICATION [Concomitant]
  3. LISINOPRIL [Concomitant]
  4. HYDROCHLOROTHIAZIDE [Concomitant]

REACTIONS (5)
  - ANXIETY [None]
  - DEPRESSION [None]
  - FEELING JITTERY [None]
  - INSOMNIA [None]
  - SUICIDAL IDEATION [None]
